FAERS Safety Report 11697903 (Version 2)
Quarter: 2015Q4

REPORT INFORMATION
  Report Type: Spontaneous
  Country: US (occurrence: US)
  Receive Date: 20151104
  Receipt Date: 20151104
  Transmission Date: 20160304
  Serious: No
  Sender: FDA-Public Use
  Company Number: ALCN2015US006832

PATIENT
  Age: 58 Year
  Sex: Female

DRUGS (1)
  1. OFLOXACIN. [Suspect]
     Active Substance: OFLOXACIN
     Indication: PREOPERATIVE CARE
     Dosage: UNK
     Route: 047
     Dates: start: 20150817, end: 20150819

REACTIONS (2)
  - Eye pruritus [Not Recovered/Not Resolved]
  - Eye irritation [Not Recovered/Not Resolved]

NARRATIVE: CASE EVENT DATE: 20150820
